FAERS Safety Report 15335577 (Version 1)
Quarter: 2018Q3

REPORT INFORMATION
  Report Type: Spontaneous
  Country: US (occurrence: US)
  Receive Date: 20180827
  Receipt Date: 20180827
  Transmission Date: 20181010
  Serious: Yes (Hospitalization)
  Sender: FDA-Public Use
  Company Number: None

PATIENT
  Age: 38 Year
  Sex: Female
  Weight: 67 kg

DRUGS (4)
  1. TRASTUZUMAB. [Suspect]
     Active Substance: TRASTUZUMAB
  2. PERTUZUMAB. [Suspect]
     Active Substance: PERTUZUMAB
  3. PACLITAXEL. [Suspect]
     Active Substance: PACLITAXEL
  4. CARBOPLATIN. [Suspect]
     Active Substance: CARBOPLATIN

REACTIONS (5)
  - Nephrolithiasis [None]
  - Back pain [None]
  - Urinary tract infection [None]
  - Bladder spasm [None]
  - Haematuria [None]

NARRATIVE: CASE EVENT DATE: 20180809
